FAERS Safety Report 7230435-3 (Version None)
Quarter: 2011Q1

REPORT INFORMATION
  Report Type: 
  Country: None (occurrence: None)
  Receive Date: 20110118
  Receipt Date: 20110110
  Transmission Date: 20110831
  Serious: Yes (Disabling, Other)
  Sender: FDA-Public Use
  Company Number: DE-ELI_LILLY_AND_COMPANY-DE201101002584

PATIENT
  Sex: Female

DRUGS (8)
  1. FORTEO [Suspect]
     Indication: OSTEOPOROSIS
     Dosage: UNK, UNKNOWN
     Route: 058
     Dates: start: 20100913
  2. NIFURETTEN [Concomitant]
     Indication: CYSTITIS
     Dosage: UNK, UNKNOWN
     Route: 065
  3. ARAVA [Concomitant]
     Dosage: UNK, UNKNOWN
     Route: 065
  4. BELOC ZOK [Concomitant]
     Dosage: UNK, UNKNOWN
     Route: 065
  5. PREDNISOLONE [Concomitant]
     Dosage: UNK, UNKNOWN
     Route: 065
     Dates: start: 20010101
  6. DIOVAN [Concomitant]
     Dosage: 80 MG, UNKNOWN
     Route: 065
  7. ASPIRIN [Concomitant]
     Dosage: 100 MG, UNKNOWN
     Route: 065
  8. CALCIUM [Concomitant]
     Dosage: UNK, UNKNOWN
     Route: 065

REACTIONS (2)
  - DEPRESSION [None]
  - VISUAL IMPAIRMENT [None]
